FAERS Safety Report 7023853-X (Version None)
Quarter: 2010Q3

REPORT INFORMATION
  Report Type: 
  Country: None (occurrence: None)
  Receive Date: 20100916
  Receipt Date: 20100726
  Transmission Date: 20110219
  Serious: No
  Sender: FDA-Public Use
  Company Number: DKLU1062687(0)

PATIENT
  Age: 28 Year
  Sex: Male

DRUGS (5)
  1. SABRIL [Suspect]
     Indication: COMPLEX PARTIAL SEIZURES
     Dosage: (500 MG MILLIGRAM(S), 2 IN 1 D, ORAL), (250 MG MILLIGRAM(S), 2 IN 1 D, ORAL)
     Route: 048
     Dates: start: 20100526, end: 20100602
  2. SABRIL [Suspect]
     Indication: COMPLEX PARTIAL SEIZURES
     Dosage: (500 MG MILLIGRAM(S), 2 IN 1 D, ORAL), (250 MG MILLIGRAM(S), 2 IN 1 D, ORAL)
     Route: 048
     Dates: start: 20100718, end: 20100719
  3. DEPAKOTE ER [Concomitant]
  4. LYRICA [Concomitant]
  5. TRILEPTAL [Concomitant]

REACTIONS (3)
  - BLISTER [None]
  - OEDEMA PERIPHERAL [None]
  - SWELLING [None]
